FAERS Safety Report 7750046-0 (Version None)
Quarter: 2011Q3

REPORT INFORMATION
  Report Type: 
  Country: None (occurrence: None)
  Receive Date: 20110914
  Receipt Date: 20110902
  Transmission Date: 20111222
  Serious: Yes (Hospitalization)
  Sender: FDA-Public Use
  Company Number: US-CELGENEUS-163-AB007-11080035

PATIENT
  Age: 38 Year
  Sex: Female
  Weight: 59 kg

DRUGS (14)
  1. ABRAXANE [Suspect]
     Indication: BREAST CANCER
     Dosage: 134 MILLIGRAM
     Route: 041
     Dates: start: 20110624
  2. ADRIAMYCIN PFS [Concomitant]
     Dosage: 100 MILLIGRAM
     Route: 041
     Dates: start: 20110715
  3. DOXORUBICIN HCL [Suspect]
     Indication: BREAST CANCER
     Dosage: 100 MILLIGRAM
     Route: 041
     Dates: start: 20110715
  4. LR [Concomitant]
     Dosage: 1 LITERS
     Route: 065
     Dates: start: 20110701
  5. BYSTOLIC [Concomitant]
     Indication: HYPERTENSION
     Dosage: 1 TABLET
     Route: 048
  6. AVASTIN [Concomitant]
     Dosage: 594 MILLIGRAM
     Route: 065
     Dates: start: 20110715
  7. CYTOXAN [Concomitant]
     Dosage: 1003 MILLIGRAM
     Route: 041
     Dates: start: 20110715
  8. HYDROCHLOROTHIAZIDE [Concomitant]
     Dosage: 25 MILLIGRAM
     Route: 048
  9. CARBOPLATIN [Concomitant]
     Indication: BREAST CANCER
     Route: 065
  10. NEULASTA [Concomitant]
     Indication: BREAST CANCER
     Route: 065
     Dates: start: 20110716
  11. TYLENOL-500 [Concomitant]
     Dosage: 1 GRAM
     Route: 065
  12. ONDANSETRON [Concomitant]
     Dosage: 4 MILLIGRAM
     Route: 048
  13. CYCLOPHOSPHAMIDE [Suspect]
     Indication: BREAST CANCER
     Dosage: 1003 MILLIGRAM
     Route: 041
     Dates: start: 20110715
  14. PROCHLORPERAZINE [Concomitant]
     Dosage: 10 MILLIGRAM
     Route: 048

REACTIONS (11)
  - HYPOKALAEMIA [None]
  - ANAEMIA [None]
  - DEHYDRATION [None]
  - FATIGUE [None]
  - PYREXIA [None]
  - MUCOSAL INFLAMMATION [None]
  - NEUTROPENIA [None]
  - THROMBOCYTOPENIA [None]
  - CHEST PAIN [None]
  - VOMITING [None]
  - NAUSEA [None]
